FAERS Safety Report 10981397 (Version 1)
Quarter: 2015Q1

REPORT INFORMATION
  Report Type: Spontaneous
  Country: US (occurrence: None)
  Receive Date: 20150227
  Receipt Date: 20150227
  Transmission Date: 20150721
  Serious: Yes (Other)
  Sender: FDA-Public Use
  Company Number: LMI-2014-00421

PATIENT
  Age: 60 Year
  Sex: Male
  Weight: 93 kg

DRUGS (7)
  1. LASIX [Concomitant]
     Active Substance: FUROSEMIDE
  2. ALDACTONE [Concomitant]
     Active Substance: SPIRONOLACTONE
  3. ASPIRIN. [Concomitant]
     Active Substance: ASPIRIN
  4. WARFARIN [Concomitant]
     Active Substance: WARFARIN
  5. DEFINITY [Suspect]
     Active Substance: PERFLUTREN
     Indication: ECHOCARDIOGRAM
     Dosage: 1.5 ML DEFINITY DILUTED IN 8.5 ML NORMAL SALINE) (10 ML,1 IN1 D)
     Route: 040
     Dates: start: 20140923, end: 20140923
  6. LISINOPRIL. [Concomitant]
     Active Substance: LISINOPRIL
  7. COREG [Concomitant]
     Active Substance: CARVEDILOL

REACTIONS (13)
  - Nausea [None]
  - Lip swelling [None]
  - Hypersensitivity [None]
  - Pruritus [None]
  - Paraesthesia [None]
  - Hyperhidrosis [None]
  - Pharyngeal oedema [None]
  - Malaise [None]
  - Hypoaesthesia oral [None]
  - Syncope [None]
  - Flushing [None]
  - Hypotension [None]
  - Dizziness [None]

NARRATIVE: CASE EVENT DATE: 20140923
